FAERS Safety Report 22033120 (Version 1)
Quarter: 2023Q1

REPORT INFORMATION
  Report Type: Spontaneous
  Country: CN (occurrence: CN)
  Receive Date: 20230224
  Receipt Date: 20230224
  Transmission Date: 20230418
  Serious: Yes (Other)
  Sender: FDA-Public Use
  Company Number: CN-BAYER-2023A020131

PATIENT
  Age: 2 Year
  Sex: Female

DRUGS (1)
  1. YAZ [Suspect]
     Active Substance: DROSPIRENONE\ETHINYL ESTRADIOL
     Dosage: UNK
     Route: 048
     Dates: start: 202301

REACTIONS (9)
  - Liver disorder [None]
  - Renal disorder [None]
  - Myocardial necrosis marker increased [None]
  - Renal function test abnormal [None]
  - Liver function test abnormal [None]
  - Cardiac function test abnormal [None]
  - Hepatic enzyme abnormal [None]
  - Product administered to patient of inappropriate age [None]
  - Overdose [None]

NARRATIVE: CASE EVENT DATE: 20230101
